FAERS Safety Report 9685373 (Version 1)
Quarter: 2013Q4

REPORT INFORMATION
  Report Type: Spontaneous
  Country: US (occurrence: None)
  Receive Date: 20131112
  Receipt Date: 20131112
  Transmission Date: 20140711
  Serious: Yes (Other)
  Sender: FDA-Public Use
  Company Number: None

PATIENT
  Age: 34 Year
  Sex: Male

DRUGS (2)
  1. FLUOXETINE 40MG TEVA [Suspect]
     Indication: MAJOR DEPRESSION
     Route: 048
  2. FLUOXETINE 20MG TEVA [Suspect]

REACTIONS (3)
  - Abdominal pain upper [None]
  - Gastrointestinal disorder [None]
  - Product substitution issue [None]
